FAERS Safety Report 21265179 (Version 1)
Quarter: 2022Q3

REPORT INFORMATION
  Report Type: Spontaneous
  Country: CA (occurrence: CA)
  Receive Date: 20220829
  Receipt Date: 20220829
  Transmission Date: 20221026
  Serious: Yes (Disabling, Other)
  Sender: FDA-Public Use
  Company Number: CA-SA-2022SA349278

PATIENT

DRUGS (2)
  1. ZANTAC [Suspect]
     Active Substance: RANITIDINE HYDROCHLORIDE
     Indication: Gastrooesophageal reflux disease
     Dosage: UNK
     Dates: start: 2005, end: 2018
  2. ZANTAC [Suspect]
     Active Substance: RANITIDINE HYDROCHLORIDE
     Indication: Dyspepsia

REACTIONS (11)
  - Clear cell renal cell carcinoma [Unknown]
  - Mental impairment [Unknown]
  - Physical disability [Not Recovered/Not Resolved]
  - Mental disorder [Unknown]
  - Scar [Unknown]
  - Pain [Unknown]
  - Fatigue [Unknown]
  - Sleep disorder [Unknown]
  - Anhedonia [Unknown]
  - General physical health deterioration [Unknown]
  - Emotional disorder [Unknown]
